FAERS Safety Report 10560211 (Version 1)
Quarter: 2014Q4

REPORT INFORMATION
  Report Type: Spontaneous
  Country: US (occurrence: None)
  Receive Date: 20141030
  Receipt Date: 20141030
  Transmission Date: 20150529
  Serious: Yes (Other)
  Sender: FDA-Public Use
  Company Number: OTH-PAT-2009004

PATIENT
  Age: 48 Year
  Sex: Female

DRUGS (19)
  1. ALPRAZOLAM. [Concomitant]
     Active Substance: ALPRAZOLAM
  2. CALCIUM CARBONATE. [Concomitant]
     Active Substance: CALCIUM CARBONATE
  3. PYRIDOXINE [Concomitant]
     Active Substance: PYRIDOXINE
  4. EVOFLOXACIN [Concomitant]
  5. ATORVASTATIN [Concomitant]
     Active Substance: ATORVASTATIN
  6. ACETYLSALICYLIC ACID [Concomitant]
     Active Substance: ASPIRIN
  7. VITAMIN B12 [Concomitant]
     Active Substance: CYANOCOBALAMIN
  8. LEVAQUIN [Concomitant]
     Active Substance: LEVOFLOXACIN
  9. PHENOBARBITAL. [Concomitant]
     Active Substance: PHENOBARBITAL
  10. CARBAMAZEPINE. [Concomitant]
     Active Substance: CARBAMAZEPINE
  11. TEGRETOL [Concomitant]
     Active Substance: CARBAMAZEPINE
  12. ASCORBIC ACID. [Concomitant]
     Active Substance: ASCORBIC ACID
  13. ECHINACEA [Concomitant]
     Active Substance: ECHINACEA, UNSPECIFIED
  14. IRON [Concomitant]
     Active Substance: IRON
  15. FOLIC ACID. [Concomitant]
     Active Substance: FOLIC ACID
  16. XANAX [Concomitant]
     Active Substance: ALPRAZOLAM
  17. LIPITOR [Concomitant]
     Active Substance: ATORVASTATIN CALCIUM
  18. CYSTADANE [Suspect]
     Active Substance: BETAINE
     Indication: HOMOCYSTINURIA
     Dosage: EVERY DAY
     Dates: start: 20080812
  19. IBUPROFEN. [Concomitant]
     Active Substance: IBUPROFEN

REACTIONS (22)
  - Cardiac failure congestive [None]
  - Sinusitis [None]
  - Cold sweat [None]
  - Exercise tolerance decreased [None]
  - Nausea [None]
  - Insomnia [None]
  - Hyperhidrosis [None]
  - Hypokinesia [None]
  - Vaginal infection [None]
  - Mitral valve prolapse [None]
  - Dyspnoea [None]
  - Erythema [None]
  - Syncope [None]
  - Palpitations [None]
  - Hypotension [None]
  - Cardiomegaly [None]
  - Bronchitis [None]
  - Vaginal discharge [None]
  - Cardiac murmur [None]
  - Asthma [None]
  - Feeling jittery [None]
  - Scoliosis [None]

NARRATIVE: CASE EVENT DATE: 20090415
